FAERS Safety Report 10916538 (Version 2)
Quarter: 2015Q2

REPORT INFORMATION
  Report Type: Spontaneous
  Country: US (occurrence: US)
  Receive Date: 20150316
  Receipt Date: 20150524
  Transmission Date: 20150821
  Serious: No
  Sender: FDA-Public Use
  Company Number: US-JNJFOC-20120516663

PATIENT
  Sex: Male

DRUGS (8)
  1. MIRALAX [Concomitant]
     Active Substance: POLYETHYLENE GLYCOL 3350
     Route: 065
  2. TEMAZEPAM. [Concomitant]
     Active Substance: TEMAZEPAM
     Route: 065
  3. UNKNOWN MEDICATION [Concomitant]
     Active Substance: UNSPECIFIED INGREDIENT
     Indication: ENEMA ADMINISTRATION
     Route: 065
  4. ZYTIGA [Suspect]
     Active Substance: ABIRATERONE ACETATE
     Indication: PROSTATE CANCER
     Route: 048
     Dates: start: 20120407
  5. MULTIVITAMINS [Concomitant]
     Active Substance: VITAMINS
     Route: 065
  6. SYNTHROID [Concomitant]
     Active Substance: LEVOTHYROXINE SODIUM
     Route: 065
  7. TAMSULOSIN [Concomitant]
     Active Substance: TAMSULOSIN
     Route: 065
  8. BABY ASPIRIN [Concomitant]
     Active Substance: ASPIRIN
     Route: 065

REACTIONS (2)
  - Wrong technique in drug usage process [Unknown]
  - Product difficult to swallow [Unknown]
